FAERS Safety Report 4602429-5 (Version None)
Quarter: 2005Q1

REPORT INFORMATION
  Report Type: 
  Country: None (occurrence: None)
  Receive Date: 20050307
  Receipt Date: 20050301
  Transmission Date: 20050727
  Serious: Yes (Death, Other)
  Sender: FDA-Public Use
  Company Number: USA-2004-0017808

PATIENT
  Age: 41 Year
  Sex: Female
  Weight: 129.7 kg

DRUGS (6)
  1. OXYCONTIN [Suspect]
     Indication: PAIN
     Dosage: MG
  2. AMITRIPTYLINE HCL [Suspect]
  3. NORTRIPTYLINE HCL [Suspect]
  4. NAPROXEN [Suspect]
  5. TRAZODONE HCL [Suspect]
  6. PAROXETINE HCL [Suspect]

REACTIONS (8)
  - ATHEROSCLEROSIS [None]
  - CARDIOMEGALY [None]
  - COMA [None]
  - GASTRITIS HAEMORRHAGIC [None]
  - MULTIPLE DRUG OVERDOSE [None]
  - OBESITY [None]
  - PULMONARY OEDEMA [None]
  - UTERINE DISORDER [None]
